FAERS Safety Report 17908214 (Version 2)
Quarter: 2020Q4

REPORT INFORMATION
  Report Type: Spontaneous
  Country: NL (occurrence: NL)
  Receive Date: 20200617
  Receipt Date: 20201015
  Transmission Date: 20210113
  Serious: Yes (Other)
  Sender: FDA-Public Use
  Company Number: NL-MYLANLABS-2020M1056704

PATIENT
  Sex: Male

DRUGS (14)
  1. DUODOPA [Suspect]
     Active Substance: CARBIDOPA\LEVODOPA
     Indication: PARKINSON^S DISEASE
     Dosage: MD: 11.3, CD: 3.4, ED: 1
     Route: 050
     Dates: start: 20170731
  2. DUODOPA [Suspect]
     Active Substance: CARBIDOPA\LEVODOPA
     Dosage: MD 11.8 CD 4.2 ED IS INCREASED TO 2.0
     Route: 050
  3. DUODOPA [Suspect]
     Active Substance: CARBIDOPA\LEVODOPA
     Dosage: CD INCREASED TO 3.7
     Route: 050
  4. DUODOPA [Suspect]
     Active Substance: CARBIDOPA\LEVODOPA
     Dosage: MD: 11.8, CD: 4.0, ED: 2.0 16 HOUR ADMINISTRATION
     Route: 050
  5. NEUPRO [Suspect]
     Active Substance: ROTIGOTINE
     Dosage: UNK
     Route: 065
  6. CLOZAPINE MYLAN [Suspect]
     Active Substance: CLOZAPINE
     Dosage: UNK
     Route: 065
  7. DUODOPA [Suspect]
     Active Substance: CARBIDOPA\LEVODOPA
     Dosage: MD 11.8 CD 4.2 ED 1.0
     Route: 050
  8. MADOPAR [Concomitant]
     Active Substance: BENSERAZIDE HYDROCHLORIDE\LEVODOPA
     Indication: PARKINSON^S DISEASE
     Dosage: 125 MG, QD
     Route: 065
  9. DUODOPA [Suspect]
     Active Substance: CARBIDOPA\LEVODOPA
     Dosage: MD 11.8 CD 4.2 ED IS INCREASED TO 2.0
     Route: 050
  10. DUODOPA [Suspect]
     Active Substance: CARBIDOPA\LEVODOPA
     Dosage: UNK
     Route: 050
  11. BOTOX [Concomitant]
     Active Substance: ONABOTULINUMTOXINA
     Indication: PRODUCT USED FOR UNKNOWN INDICATION
     Dosage: UNK
  12. DUODOPA [Suspect]
     Active Substance: CARBIDOPA\LEVODOPA
     Dosage: UNK
     Route: 050
  13. DUODOPA [Suspect]
     Active Substance: CARBIDOPA\LEVODOPA
     Dosage: MD 11.8 CD 4.2 ED 1.0
     Route: 050
  14. NEUPRO [Suspect]
     Active Substance: ROTIGOTINE
     Indication: PRODUCT USED FOR UNKNOWN INDICATION
     Dosage: UNK
     Route: 065

REACTIONS (53)
  - Mobility decreased [Not Recovered/Not Resolved]
  - Stoma site erythema [Recovered/Resolved]
  - Nocturia [Not Recovered/Not Resolved]
  - Memory impairment [Not Recovered/Not Resolved]
  - Abdominal pain [Recovering/Resolving]
  - Fine motor skill dysfunction [Not Recovered/Not Resolved]
  - Confusional state [Not Recovered/Not Resolved]
  - Hallucination [Not Recovered/Not Resolved]
  - Dystonia [Unknown]
  - On and off phenomenon [Not Recovered/Not Resolved]
  - Contusion [Not Recovered/Not Resolved]
  - Delusion [Not Recovered/Not Resolved]
  - Fatigue [Unknown]
  - Therapeutic product effect incomplete [Not Recovered/Not Resolved]
  - Fibroma [Not Recovered/Not Resolved]
  - Stoma site inflammation [Recovered/Resolved]
  - Freezing phenomenon [Not Recovered/Not Resolved]
  - Muscle rigidity [Not Recovered/Not Resolved]
  - Parkinson^s disease [Not Recovered/Not Resolved]
  - Stoma site discomfort [Recovered/Resolved]
  - General physical health deterioration [Not Recovered/Not Resolved]
  - Foot deformity [Not Recovered/Not Resolved]
  - Posture abnormal [Not Recovered/Not Resolved]
  - Malaise [Recovering/Resolving]
  - Weight decreased [Recovering/Resolving]
  - Myalgia [Not Recovered/Not Resolved]
  - Eating disorder [Recovered/Resolved]
  - Taste disorder [Not Recovered/Not Resolved]
  - Wound secretion [Recovered/Resolved]
  - Stoma site pain [Not Recovered/Not Resolved]
  - Dyskinesia [Not Recovered/Not Resolved]
  - Muscle spasms [Recovered/Resolved]
  - Fall [Recovered/Resolved]
  - Agitation [Not Recovered/Not Resolved]
  - Nausea [Not Recovered/Not Resolved]
  - Adverse drug reaction [Not Recovered/Not Resolved]
  - Gait disturbance [Not Recovered/Not Resolved]
  - Hypersomnia [Recovered/Resolved]
  - Poor quality sleep [Not Recovered/Not Resolved]
  - Depressed mood [Not Recovered/Not Resolved]
  - Abnormal faeces [Recovered/Resolved]
  - Pain in extremity [Not Recovered/Not Resolved]
  - Tremor [Not Recovered/Not Resolved]
  - Stoma site haemorrhage [Recovered/Resolved]
  - Musculoskeletal stiffness [Not Recovered/Not Resolved]
  - Asthenia [Not Recovered/Not Resolved]
  - Hypokinesia [Not Recovered/Not Resolved]
  - Balance disorder [Not Recovered/Not Resolved]
  - Stereotypy [Not Recovered/Not Resolved]
  - Stoma site discharge [Not Recovered/Not Resolved]
  - Decreased appetite [Not Recovered/Not Resolved]
  - Hypoaesthesia [Not Recovered/Not Resolved]
  - Dysphagia [Not Recovered/Not Resolved]

NARRATIVE: CASE EVENT DATE: 2017
